FAERS Safety Report 7807132-6 (Version None)
Quarter: 2011Q4

REPORT INFORMATION
  Report Type: 
  Country: None (occurrence: None)
  Receive Date: 20111011
  Receipt Date: 20110928
  Transmission Date: 20120403
  Serious: Yes (Other)
  Sender: FDA-Public Use
  Company Number: US-ELI_LILLY_AND_COMPANY-US201009007048

PATIENT
  Sex: Female

DRUGS (11)
  1. FORTEO [Suspect]
     Dosage: 20 UG, DAILY (1/D)
  2. FORTEO [Suspect]
     Dosage: 20 UG, QD
  3. OMEPRAZOLE [Concomitant]
  4. FORTEO [Suspect]
     Dosage: 20 UG, QD
  5. FORTEO [Suspect]
     Dosage: 20 UG, QD
  6. FORTEO [Suspect]
     Dosage: 20 UG, QD
  7. CALCIUM CARBONATE [Concomitant]
  8. FORTEO [Suspect]
     Dosage: 20 UG, DAILY (1/D)
  9. FORTEO [Suspect]
     Indication: OSTEOPOROSIS
     Dosage: 20 UG, DAILY (1/D)
     Dates: start: 20100830
  10. FORTEO [Suspect]
     Dosage: 20 UG, DAILY (1/D)
  11. CALCIUM CARBONATE [Concomitant]

REACTIONS (15)
  - PAIN IN EXTREMITY [None]
  - WEIGHT BEARING DIFFICULTY [None]
  - BLOOD THYROID STIMULATING HORMONE INCREASED [None]
  - ABDOMINAL DISCOMFORT [None]
  - INSOMNIA [None]
  - UTERINE HAEMORRHAGE [None]
  - HYDROMETRA [None]
  - UTERINE DISORDER [None]
  - ADVERSE EVENT [None]
  - ARTHRALGIA [None]
  - UTERINE CANCER [None]
  - PAIN [None]
  - INJECTION SITE PAIN [None]
  - INJECTION SITE HAEMORRHAGE [None]
  - INJECTION SITE HAEMATOMA [None]
